FAERS Safety Report 21158360 (Version 15)
Quarter: 2023Q1

REPORT INFORMATION
  Report Type: Report from Study
  Country: CN (occurrence: CN)
  Receive Date: 20220801
  Receipt Date: 20230223
  Transmission Date: 20230418
  Serious: Yes (Hospitalization, Other)
  Sender: FDA-Public Use
  Company Number: CN-FOSUNKITE-FOSUNKITE-20220119

PATIENT
  Age: 50 Year
  Sex: Female

DRUGS (13)
  1. AXICABTAGENE CILOLEUCEL [Suspect]
     Active Substance: AXICABTAGENE CILOLEUCEL
     Indication: Diffuse large B-cell lymphoma
     Dosage: 1.5*10^8 CELLS (NUMBER OF CAR T CELLS)
     Route: 042
     Dates: start: 20220708, end: 20220708
  2. CYCLOPHOSPHAMIDE [Suspect]
     Active Substance: CYCLOPHOSPHAMIDE
     Indication: Lymphodepletion
     Dosage: 0.9 G
     Route: 041
     Dates: start: 20220703, end: 20220705
  3. CYCLOPHOSPHAMIDE [Suspect]
     Active Substance: CYCLOPHOSPHAMIDE
     Dosage: 0.9 G
     Route: 041
     Dates: start: 20220704
  4. CYCLOPHOSPHAMIDE [Suspect]
     Active Substance: CYCLOPHOSPHAMIDE
     Dosage: 0.9 G
     Route: 041
     Dates: start: 20220705
  5. FLUDARABINE [Suspect]
     Active Substance: FLUDARABINE PHOSPHATE
     Indication: Lymphodepletion
     Dosage: 50 MG, QD
     Route: 042
     Dates: start: 20220703, end: 20220705
  6. IBRUTINIB [Concomitant]
     Active Substance: IBRUTINIB
     Indication: Diffuse large B-cell lymphoma
     Dosage: 420 MG, QD
     Route: 048
     Dates: start: 20220703, end: 20220714
  7. IBRUTINIB [Concomitant]
     Active Substance: IBRUTINIB
     Dosage: 420 MG
     Dates: start: 20220614, end: 20220615
  8. FLUDARABINE PHOSPHATE [Concomitant]
     Active Substance: FLUDARABINE PHOSPHATE
     Indication: Lymphodepletion
     Dosage: 50 MG
     Route: 041
     Dates: start: 20220703
  9. FLUDARABINE PHOSPHATE [Concomitant]
     Active Substance: FLUDARABINE PHOSPHATE
     Dosage: 50 MG
     Route: 041
     Dates: start: 20220704
  10. FLUDARABINE PHOSPHATE [Concomitant]
     Active Substance: FLUDARABINE PHOSPHATE
     Dosage: 50 MG
     Route: 041
     Dates: start: 20220705
  11. OBINUTUZUMAB [Concomitant]
     Active Substance: OBINUTUZUMAB
     Indication: Diffuse large B-cell lymphoma
     Dosage: 1000 MG
     Dates: start: 20220613
  12. OXALIPLATIN [Concomitant]
     Active Substance: OXALIPLATIN
     Dosage: 100 MG
     Dates: start: 20220614
  13. CYTARABINE [Concomitant]
     Active Substance: CYTARABINE
     Dosage: 1000 MG
     Dates: start: 20220614

REACTIONS (29)
  - Full blood count decreased [Recovering/Resolving]
  - Cytokine release syndrome [Recovered/Resolved]
  - Immune effector cell-associated neurotoxicity syndrome [Recovered/Resolved]
  - Atrial fibrillation [Recovered/Resolved]
  - Hypokalaemia [Recovered/Resolved]
  - Anaemia [Not Recovered/Not Resolved]
  - Hepatic function abnormal [Recovered/Resolved]
  - Neutrophil count decreased [Not Recovered/Not Resolved]
  - Hypocalcaemia [Recovered/Resolved]
  - Hyponatraemia [Recovered/Resolved]
  - Hypophosphataemia [Recovered/Resolved]
  - Hypoalbuminaemia [Recovered/Resolved]
  - White blood cell count decreased [Not Recovered/Not Resolved]
  - Platelet count decreased [Recovered/Resolved]
  - Lymphocyte count decreased [Recovered/Resolved]
  - Interleukin level increased [Not Recovered/Not Resolved]
  - Serum ferritin increased [Not Recovered/Not Resolved]
  - Sinus tachycardia [Recovered/Resolved]
  - C-reactive protein increased [Recovered/Resolved]
  - Proteinuria [Recovered/Resolved]
  - Glucose urine [Recovered/Resolved]
  - Haematuria [Recovered/Resolved]
  - Procalcitonin increased [Recovered/Resolved]
  - Hyperglycaemia [Recovered/Resolved]
  - Insomnia [Recovered/Resolved]
  - Serum ferritin increased [Not Recovered/Not Resolved]
  - Blood fibrinogen decreased [Not Recovered/Not Resolved]
  - Neutrophil count decreased [Not Recovered/Not Resolved]
  - Blood bilirubin increased [Not Recovered/Not Resolved]

NARRATIVE: CASE EVENT DATE: 20220709
